FAERS Safety Report 6752669-4 (Version None)
Quarter: 2010Q2

REPORT INFORMATION
  Report Type: 
  Country: None (occurrence: None)
  Receive Date: 20100602
  Receipt Date: 20100520
  Transmission Date: 20101027
  Serious: Yes (Hospitalization)
  Sender: FDA-Public Use
  Company Number: JP-ABBOTT-10P-087-0631362-00

PATIENT
  Age: 62 Year
  Sex: Male
  Weight: 73 kg

DRUGS (4)
  1. LEUPROLIDE ACETATE [Suspect]
     Indication: PROSTATE CANCER STAGE IV
     Route: 058
     Dates: start: 20070824, end: 20080801
  2. ESTRAMUSTINE PHOSPHATE SODIUM [Concomitant]
     Indication: PROSTATE CANCER STAGE IV
     Route: 048
     Dates: start: 20070928, end: 20080613
  3. GASTER D [Concomitant]
     Indication: PROPHYLAXIS AGAINST GASTROINTESTINAL ULCER
     Route: 048
     Dates: start: 20070928
  4. ASPIRIN [Concomitant]
     Indication: THROMBOSIS PROPHYLAXIS
     Route: 048
     Dates: start: 20070928

REACTIONS (1)
  - LUNG NEOPLASM MALIGNANT [None]
